FAERS Safety Report 20677528 (Version 1)
Quarter: 2022Q2

REPORT INFORMATION
  Report Type: Spontaneous
  Country: RS (occurrence: RS)
  Receive Date: 20220406
  Receipt Date: 20220406
  Transmission Date: 20220721
  Serious: Yes (Other)
  Sender: FDA-Public Use
  Company Number: RS-NOVARTISPH-NVSC2022RS075273

PATIENT
  Age: 48 Year
  Sex: Female

DRUGS (8)
  1. METHOTREXATE [Suspect]
     Active Substance: METHOTREXATE
     Indication: Dermatitis exfoliative generalised
     Dosage: 12.5 MG, QW
     Route: 065
  2. METHOTREXATE [Suspect]
     Active Substance: METHOTREXATE
     Dosage: 15 G
     Route: 065
     Dates: start: 2004, end: 2009
  3. CEFTRIAXONE [Suspect]
     Active Substance: CEFTRIAXONE
     Indication: Dermatitis exfoliative generalised
     Dosage: 2 G
     Route: 065
  4. IRON DEXTRAN [Suspect]
     Active Substance: IRON DEXTRAN
     Indication: Dermatitis exfoliative generalised
     Dosage: UNK
     Route: 065
  5. METHYLPREDNISOLONE SODIUM SUCCINATE [Concomitant]
     Active Substance: METHYLPREDNISOLONE SODIUM SUCCINATE
     Indication: Product used for unknown indication
     Dosage: 80 MG, QD
     Route: 030
  6. CIPROFLOXACIN [Concomitant]
     Active Substance: CIPROFLOXACIN
     Indication: Product used for unknown indication
     Dosage: UNK
     Route: 065
  7. FOLIC ACID [Concomitant]
     Active Substance: FOLIC ACID
     Indication: Dermatitis exfoliative generalised
     Dosage: 5 G
     Route: 065
  8. VITAMIN C [Concomitant]
     Active Substance: ASCORBIC ACID
     Indication: Dermatitis exfoliative generalised
     Dosage: UNK
     Route: 065

REACTIONS (8)
  - Iridocyclitis [Unknown]
  - Conjunctival hyperaemia [Unknown]
  - Ocular hyperaemia [Unknown]
  - Eye pain [Unknown]
  - Psoriatic arthropathy [Unknown]
  - Psoriasis [Unknown]
  - Arthralgia [Unknown]
  - Oedema [Unknown]

NARRATIVE: CASE EVENT DATE: 20190718
